FAERS Safety Report 19091825 (Version 1)
Quarter: 2021Q2

REPORT INFORMATION
  Report Type: Report from Study
  Country: CA (occurrence: CA)
  Receive Date: 20210405
  Receipt Date: 20210405
  Transmission Date: 20210717
  Serious: Yes (Other)
  Sender: FDA-Public Use
  Company Number: CA-TAKEDA-2021TUS020505

PATIENT
  Age: 74 Year
  Sex: Female

DRUGS (13)
  1. ELIQUIS [Concomitant]
     Active Substance: APIXABAN
  2. OLMESARTAN [Concomitant]
     Active Substance: OLMESARTAN
     Indication: ATRIAL FIBRILLATION
  3. SYNTHROID [Concomitant]
     Active Substance: LEVOTHYROXINE SODIUM
     Indication: THYROID DISORDER
  4. PROCTOSEDYL BD [Concomitant]
     Indication: HAEMORRHOIDS
  5. PENTASA [Concomitant]
     Active Substance: MESALAMINE
     Dosage: 1 GRAM, QID
     Dates: start: 20120206
  6. VEDOLIZUMAB [Suspect]
     Active Substance: VEDOLIZUMAB
     Dosage: 300 MILLIGRAM, Q4WEEKS
     Route: 042
     Dates: start: 20191205
  7. IRON [Concomitant]
     Active Substance: IRON
     Indication: SUPPLEMENTATION THERAPY
     Dosage: UNK
  8. VITAMIN B12 [Concomitant]
     Active Substance: CYANOCOBALAMIN
     Dosage: UNK
  9. VEDOLIZUMAB [Suspect]
     Active Substance: VEDOLIZUMAB
     Indication: CROHN^S DISEASE
     Dosage: 300 MILLIGRAM
     Route: 042
     Dates: start: 20171209
  10. AERIUS [EBASTINE] [Concomitant]
     Active Substance: EBASTINE
     Indication: SEASONAL ALLERGY
  11. SOFLAX [DOCUSATE SODIUM] [Concomitant]
     Indication: HAEMORRHOIDS
  12. SANDOZ AMLODIPINE [AMLODIPINE BESILATE] [Concomitant]
     Indication: BLOOD PRESSURE INCREASED
     Dosage: UNK
  13. FENO?MICRO [Concomitant]
     Indication: BLOOD CHOLESTEROL
     Dosage: UNK

REACTIONS (2)
  - Off label use [Unknown]
  - Cataract [Unknown]

NARRATIVE: CASE EVENT DATE: 20191205
